FAERS Safety Report 5215341-8 (Version None)
Quarter: 2007Q1

REPORT INFORMATION
  Report Type: 
  Country: None (occurrence: None)
  Receive Date: 20070116
  Receipt Date: 20061211
  Transmission Date: 20070707
  Serious: Yes (Other)
  Sender: FDA-Public Use
  Company Number: 9039997-2006-00134

PATIENT

DRUGS (1)
  1. LEVULAN [Suspect]
     Indication: BARRETT'S OESOPHAGUS
     Dosage: 40 MG/KG, ONCE, ORAL
     Route: 048

REACTIONS (1)
  - ATRIAL FIBRILLATION [None]
